FAERS Safety Report 8038068-6 (Version None)
Quarter: 2012Q1

REPORT INFORMATION
  Report Type: 
  Country: None (occurrence: None)
  Receive Date: 20120111
  Receipt Date: 20120106
  Transmission Date: 20120608
  Serious: Yes (Hospitalization, Other)
  Sender: FDA-Public Use
  Company Number: US-MERCK-0708USA05622

PATIENT
  Age: 46 Year
  Sex: Female
  Weight: 73 kg

DRUGS (4)
  1. FLEXERIL [Concomitant]
     Indication: MUSCLE SPASMS
     Route: 065
     Dates: start: 19890101
  2. FOSAMAX [Suspect]
     Route: 048
     Dates: start: 20020801, end: 20080101
  3. FOSAMAX [Suspect]
     Indication: OSTEOPOROSIS
     Route: 048
     Dates: start: 19960201, end: 20050401
  4. CELEBREX [Concomitant]
     Indication: ARTHRITIS
     Route: 065
     Dates: start: 20010101

REACTIONS (79)
  - DEHYDRATION [None]
  - CERVICAL SPINAL STENOSIS [None]
  - VARICOSE ULCERATION [None]
  - TOOTH FRACTURE [None]
  - HYPERSENSITIVITY [None]
  - CONTUSION [None]
  - CARDIOVASCULAR DISORDER [None]
  - ANXIETY [None]
  - GENERALISED OEDEMA [None]
  - SPINAL FRACTURE [None]
  - SKIN ULCER [None]
  - HYPOTENSION [None]
  - MYOCARDIAL INFARCTION [None]
  - SPINAL DISORDER [None]
  - ORAL CANDIDIASIS [None]
  - DIARRHOEA [None]
  - BALANCE DISORDER [None]
  - PELVIC FRACTURE [None]
  - NEPHROLITHIASIS [None]
  - ARTHRITIS [None]
  - GASTRIC DISORDER [None]
  - ABNORMAL LOSS OF WEIGHT [None]
  - ARTHROPATHY [None]
  - DYSPNOEA EXERTIONAL [None]
  - ANGINA PECTORIS [None]
  - APPENDIX DISORDER [None]
  - SEDATION [None]
  - SYNCOPE [None]
  - MYELOPATHY [None]
  - LOBAR PNEUMONIA [None]
  - SINUS DISORDER [None]
  - HAEMATOMA [None]
  - CONSTIPATION [None]
  - CHEST PAIN [None]
  - DIZZINESS [None]
  - ANAEMIA [None]
  - BLOOD ELECTROLYTES ABNORMAL [None]
  - GALLBLADDER DISORDER [None]
  - SPINAL OSTEOARTHRITIS [None]
  - VITAMIN D DEFICIENCY [None]
  - LYMPHOEDEMA [None]
  - CHRONIC OBSTRUCTIVE PULMONARY DISEASE [None]
  - STASIS DERMATITIS [None]
  - NAUSEA [None]
  - LEUKOCYTOSIS [None]
  - ESCHERICHIA URINARY TRACT INFECTION [None]
  - OEDEMA PERIPHERAL [None]
  - STRESS FRACTURE [None]
  - KYPHOSIS [None]
  - MYOCARDIAL ISCHAEMIA [None]
  - HYDRONEPHROSIS [None]
  - COMPRESSION FRACTURE [None]
  - OSTEONECROSIS OF JAW [None]
  - CELLULITIS [None]
  - FALL [None]
  - HAEMATOCRIT DECREASED [None]
  - UTERINE DISORDER [None]
  - URINARY TRACT INFECTION [None]
  - PNEUMONIA [None]
  - ORTHOSTATIC INTOLERANCE [None]
  - VERTEBRAL FORAMINAL STENOSIS [None]
  - ORTHOPNOEA [None]
  - MAJOR DEPRESSION [None]
  - CORONARY ARTERY DISEASE [None]
  - CERVICAL VERTEBRAL FRACTURE [None]
  - CHAPPED LIPS [None]
  - CALCULUS URETERIC [None]
  - HYPERTENSION [None]
  - LARYNGEAL OEDEMA [None]
  - INTERVERTEBRAL DISC PROTRUSION [None]
  - TONSILLAR DISORDER [None]
  - VOMITING [None]
  - ATRIOVENTRICULAR BLOCK [None]
  - VENOUS INSUFFICIENCY [None]
  - STAPHYLOCOCCUS TEST POSITIVE [None]
  - INSOMNIA [None]
  - HEADACHE [None]
  - FATIGUE [None]
  - DENTAL CARIES [None]
